FAERS Safety Report 14010564 (Version 1)
Quarter: 2017Q3

REPORT INFORMATION
  Report Type: Report from Study
  Country: US (occurrence: US)
  Receive Date: 20170926
  Receipt Date: 20170926
  Transmission Date: 20171128
  Serious: No
  Sender: FDA-Public Use
  Company Number: PHEH2017US030469

PATIENT
  Sex: Male

DRUGS (2)
  1. COSENTYX [Suspect]
     Active Substance: SECUKINUMAB
     Indication: PRODUCT USED FOR UNKNOWN INDICATION
     Dosage: UNK
     Route: 065
  2. COSENTYX [Suspect]
     Active Substance: SECUKINUMAB
     Dosage: 300 MG, QMO
     Route: 042
     Dates: start: 20170915

REACTIONS (8)
  - Fall [Unknown]
  - Pain in extremity [Unknown]
  - Screaming [Unknown]
  - Incorrect route of drug administration [Unknown]
  - Paraesthesia [Unknown]
  - Nervousness [Unknown]
  - Hypoaesthesia [Unknown]
  - Sleep disorder [Unknown]
